FAERS Safety Report 9359139 (Version 1)
Quarter: 2013Q2

REPORT INFORMATION
  Report Type: Spontaneous
  Country: CA (occurrence: CA)
  Receive Date: 20130620
  Receipt Date: 20130620
  Transmission Date: 20140414
  Serious: Yes (Other)
  Sender: FDA-Public Use
  Company Number: CA-B.I. PHARMACEUTICALS,INC./RIDGEFIELD-2013-CN-01108CN

PATIENT
  Sex: Female

DRUGS (2)
  1. PRADAX [Suspect]
     Dosage: 1.0 DOSAGE FORM
     Route: 048
  2. ANTI-HYPERTENSIVE MEDICATION(S) [Concomitant]

REACTIONS (5)
  - Asthenia [Not Recovered/Not Resolved]
  - Chest pain [Not Recovered/Not Resolved]
  - Muscle strain [Not Recovered/Not Resolved]
  - Muscular weakness [Not Recovered/Not Resolved]
  - Vomiting [Not Recovered/Not Resolved]
